FAERS Safety Report 6359420-0 (Version None)
Quarter: 2009Q3

REPORT INFORMATION
  Report Type: 
  Country: None (occurrence: None)
  Receive Date: 20090917
  Receipt Date: 20090903
  Transmission Date: 20100115
  Serious: Yes (Other)
  Sender: FDA-Public Use
  Company Number: GB-MYLANLABS-2009S1008354

PATIENT
  Age: 51 Year
  Sex: Female
  Weight: 171 kg

DRUGS (3)
  1. INDAPAMIDE [Suspect]
     Indication: BLOOD PRESSURE INCREASED
     Route: 048
  2. CANDESARTAN CILEXETIL [Concomitant]
     Indication: BLOOD PRESSURE INCREASED
     Route: 048
     Dates: start: 20080101
  3. LEVOTHYROXINE SODIUM [Concomitant]
     Indication: HYPOTHYROIDISM
     Route: 048
     Dates: start: 20070101

REACTIONS (4)
  - ERYTHEMA [None]
  - PHOTOSENSITIVITY REACTION [None]
  - PRURITUS [None]
  - RASH [None]
